FAERS Safety Report 5047025-3 (Version None)
Quarter: 2006Q3

REPORT INFORMATION
  Report Type: 
  Country: None (occurrence: None)
  Receive Date: 20060703
  Receipt Date: 20060626
  Transmission Date: 20061208
  Serious: Yes (Other)
  Sender: FDA-Public Use
  Company Number: 2006081235

PATIENT
  Age: 42 Year
  Sex: Female
  Weight: 90.7194 kg

DRUGS (8)
  1. ZOLOFT [Suspect]
     Dosage: 50 MG (50 MG, 1 IN 1 D)
     Dates: end: 20060626
  2. RISPERDAL [Concomitant]
  3. NIMOTOP [Concomitant]
  4. AMBIEN [Concomitant]
  5. PREVACID [Concomitant]
  6. PRAVACHOL [Concomitant]
  7. ZETIA [Concomitant]
  8. ALL OTHER THERAPEUTIC PRODUCTS [Concomitant]

REACTIONS (2)
  - CEREBROVASCULAR ACCIDENT [None]
  - HYPOAESTHESIA FACIAL [None]
